FAERS Safety Report 9648381 (Version 2)
Quarter: 2013Q4

REPORT INFORMATION
  Report Type: Spontaneous
  Country: CO (occurrence: CO)
  Receive Date: 20131028
  Receipt Date: 20131028
  Transmission Date: 20140711
  Serious: Yes (Death, Other)
  Sender: FDA-Public Use
  Company Number: CO-PFIZER INC-2013207425

PATIENT
  Age: 59 Year
  Sex: Male

DRUGS (2)
  1. SUTENT [Suspect]
     Indication: RENAL CANCER
     Dosage: 12.5MG AND 25MG, 1X/DAY
     Route: 048
     Dates: start: 201303
  2. ENALAPRIL [Concomitant]
     Indication: HYPERTENSION
     Dosage: 20 MG, 1X/DAY
     Route: 048
     Dates: start: 1993

REACTIONS (5)
  - Death [Fatal]
  - Tumour haemorrhage [Recovered/Resolved]
  - Urinary tract infection [Recovered/Resolved]
  - Haemorrhage [Recovered/Resolved]
  - Blood urine [Recovered/Resolved]
